FAERS Safety Report 9505243 (Version 1)
Quarter: 2013Q1

REPORT INFORMATION
  Report Type: Spontaneous
  Country: US (occurrence: None)
  Receive Date: 20130220
  Receipt Date: 20130220
  Transmission Date: 20140127
  Serious: No
  Sender: FDA-Public Use
  Company Number: 1000041092

PATIENT
  Age: 40 Year
  Sex: Female

DRUGS (4)
  1. VIIBRYD [Suspect]
     Indication: DEPRESSION
     Dosage: 10 MG (10 MG, 1 IN 1 D), ORAL
     Route: 048
     Dates: start: 201210
  2. VIBRYD [Suspect]
  3. TRIVORA (LEVONORGESTREL, ETHINYL ESTRADIOL) (LEVONORGESTREL, ETHINYL ESTRADIOL) [Concomitant]
  4. TRAMADOL (TRAMADOL) (TRAMADOL) [Concomitant]

REACTIONS (1)
  - Arthralgia [None]
